FAERS Safety Report 5398044-9 (Version None)
Quarter: 2007Q3

REPORT INFORMATION
  Report Type: 
  Country: None (occurrence: None)
  Receive Date: 20070726
  Receipt Date: 20070720
  Transmission Date: 20080115
  Serious: Yes (Death, Hospitalization)
  Sender: FDA-Public Use
  Company Number: GB-ASTRAZENECA-2007GB01528

PATIENT
  Age: 29047 Day
  Sex: Female

DRUGS (8)
  1. CRESTOR [Suspect]
     Route: 048
     Dates: start: 20030801
  2. ISOSORBIDE MONONITRATE [Concomitant]
     Dosage: LONG TERM
  3. ASPIRIN [Concomitant]
     Dosage: LONG TERM
  4. EZETIMIBE [Concomitant]
     Dosage: STARTED MORE THAN TWO YEARS AGO
  5. LANSOPRAZOLE [Concomitant]
  6. CALCICHEW D3 [Concomitant]
  7. CITALOPRAM HYDROBROMIDE [Concomitant]
  8. QUETIAPINE FUMARATE [Concomitant]

REACTIONS (2)
  - RENAL FAILURE ACUTE [None]
  - RHABDOMYOLYSIS [None]
